FAERS Safety Report 17676948 (Version 1)
Quarter: 2020Q2

REPORT INFORMATION
  Report Type: Spontaneous
  Country: IT (occurrence: IT)
  Receive Date: 20200416
  Receipt Date: 20200416
  Transmission Date: 20200714
  Serious: Yes (Life-Threatening, Hospitalization, Other)
  Sender: FDA-Public Use
  Company Number: IT-HIKMA PHARMACEUTICALS USA INC.-IT-H14001-20-51108

PATIENT
  Age: 64 Year
  Sex: Male

DRUGS (6)
  1. VINCRISTINE [Suspect]
     Active Substance: VINCRISTINE
     Indication: BLASTIC PLASMACYTOID DENDRITIC CELL NEOPLASIA
     Route: 065
     Dates: start: 2017
  2. CYTARABINE. [Suspect]
     Active Substance: CYTARABINE
     Indication: METASTASES TO SKIN
     Route: 065
     Dates: start: 2017
  3. DOXORUBICIN [Suspect]
     Active Substance: DOXORUBICIN
     Indication: BLASTIC PLASMACYTOID DENDRITIC CELL NEOPLASIA
     Route: 065
     Dates: start: 2017
  4. CYCLOPHOSPHAMIDE. [Suspect]
     Active Substance: CYCLOPHOSPHAMIDE
     Indication: METASTASES TO SKIN
     Route: 065
     Dates: start: 2017
  5. METHOTREXATE. [Suspect]
     Active Substance: METHOTREXATE
     Indication: BLASTIC PLASMACYTOID DENDRITIC CELL NEOPLASIA
     Route: 065
     Dates: start: 2017
  6. DEXAMETHASONE. [Suspect]
     Active Substance: DEXAMETHASONE
     Indication: METASTASES TO SKIN
     Route: 065
     Dates: start: 2017

REACTIONS (4)
  - Anal abscess [Unknown]
  - Infected dermal cyst [Unknown]
  - Gastrointestinal inflammation [Unknown]
  - Stomatitis [Unknown]
